FAERS Safety Report 8436633-5 (Version None)
Quarter: 2012Q2

REPORT INFORMATION
  Report Type: 
  Country: None (occurrence: None)
  Receive Date: 20120614
  Receipt Date: 20120605
  Transmission Date: 20120825
  Serious: Yes (Hospitalization, Other)
  Sender: FDA-Public Use
  Company Number: BE-ASTRAZENECA-2012SE37192

PATIENT
  Age: 80 Year
  Sex: Female

DRUGS (3)
  1. TRANXENE [Concomitant]
  2. SEROQUEL XR [Suspect]
     Indication: BIPOLAR DISORDER
     Route: 048
  3. TRAZODONE HCL [Suspect]

REACTIONS (2)
  - ARRHYTHMIA [None]
  - SYNCOPE [None]
